FAERS Safety Report 17435647 (Version 1)
Quarter: 2020Q1

REPORT INFORMATION
  Report Type: Spontaneous
  Country: US (occurrence: US)
  Receive Date: 20200219
  Receipt Date: 20200219
  Transmission Date: 20200409
  Serious: No
  Sender: FDA-Public Use
  Company Number: US-MIKART, LLC-2080657

PATIENT
  Age: 62 Year
  Sex: Female

DRUGS (2)
  1. CHLORZOXAZONE. [Suspect]
     Active Substance: CHLORZOXAZONE
     Indication: MUSCLE SPASMS
     Route: 048
     Dates: start: 201912, end: 202001
  2. THYROID MEDICATION (NAME NOT SPECIFIED) [Concomitant]

REACTIONS (1)
  - Drug ineffective [Unknown]

NARRATIVE: CASE EVENT DATE: 201912
